FAERS Safety Report 22830849 (Version 2)
Quarter: 2024Q3

REPORT INFORMATION
  Report Type: Spontaneous
  Country: PT (occurrence: PT)
  Receive Date: 20230817
  Receipt Date: 20240912
  Transmission Date: 20241017
  Serious: Yes (Hospitalization, Other)
  Sender: CELLTRION
  Company Number: PT-CELLTRION INC.-2023PT016172

PATIENT

DRUGS (8)
  1. RITUXIMAB [Suspect]
     Active Substance: RITUXIMAB
     Indication: Prophylaxis against transplant rejection
     Route: 065
  2. RITUXIMAB [Suspect]
     Active Substance: RITUXIMAB
     Indication: Prophylaxis against transplant rejection
  3. PREDNISOLONE [Suspect]
     Active Substance: PREDNISOLONE
     Indication: Prophylaxis against transplant rejection
     Dosage: 5 MG DAILY
     Route: 065
  4. PREDNISOLONE [Suspect]
     Active Substance: PREDNISOLONE
     Indication: Prophylaxis against transplant rejection
  5. MYCOPHENOLATE MOFETIL [Suspect]
     Active Substance: MYCOPHENOLATE MOFETIL
     Indication: Prophylaxis against transplant rejection
     Dosage: 500 MG TWICE
     Route: 065
  6. MYCOPHENOLATE MOFETIL [Suspect]
     Active Substance: MYCOPHENOLATE MOFETIL
     Indication: Prophylaxis against transplant rejection
  7. TACROLIMUS [Suspect]
     Active Substance: TACROLIMUS
     Indication: Prophylaxis against transplant rejection
     Dosage: 11.0 MG DAILY
     Route: 065
  8. TACROLIMUS [Suspect]
     Active Substance: TACROLIMUS
     Indication: Prophylaxis against transplant rejection

REACTIONS (8)
  - Renal impairment [Recovered/Resolved]
  - Leukocytosis [Recovered/Resolved]
  - Pancreatic enzyme abnormality [Recovered/Resolved]
  - Cytomegalovirus infection [Recovered/Resolved]
  - Human polyomavirus infection [Recovered/Resolved]
  - Adenovirus infection [Recovered/Resolved]
  - Urosepsis [Unknown]
  - Intentional product use issue [Unknown]
